FAERS Safety Report 11071812 (Version 2)
Quarter: 2015Q2

REPORT INFORMATION
  Report Type: Spontaneous
  Country: FR (occurrence: None)
  Receive Date: 20150424
  Receipt Date: 20150611
  Transmission Date: 20150821
  Serious: Yes (Other)
  Sender: FDA-Public Use
  Company Number: FR2015GSK053183

PATIENT
  Age: 65 Year
  Sex: Male
  Weight: 75 kg

DRUGS (7)
  1. TEMESTA (LORAZEPAM) [Concomitant]
     Active Substance: LORAZEPAM
  2. AERIUS [Concomitant]
     Active Substance: DESLORATADINE
  3. TIVICAY [Suspect]
     Active Substance: DOLUTEGRAVIR SODIUM
     Indication: HIV INFECTION
     Route: 048
     Dates: start: 20150219, end: 20150226
  4. VIREAD (TENOFOVIR DISOPROXIL FUMARATE) [Concomitant]
  5. EMTRIVA (EMTRICITABINE) [Concomitant]
  6. HYTACAND (CANDESARTAN CILEXETIL + HYDROCHLOROTHIAZIDE) [Concomitant]
  7. VASTEN (PRAVASTATIN SODIUM) [Concomitant]

REACTIONS (5)
  - Fatigue [None]
  - Asthenia [None]
  - Feeling abnormal [None]
  - Suicidal ideation [None]
  - Mental disorder [None]

NARRATIVE: CASE EVENT DATE: 20150222
